FAERS Safety Report 26147117 (Version 3)
Quarter: 2025Q4

REPORT INFORMATION
  Report Type: Report from Study
  Country: KR (occurrence: KR)
  Receive Date: 20251211
  Receipt Date: 20251225
  Transmission Date: 20260117
  Serious: Yes (Hospitalization)
  Sender: ABBVIE
  Company Number: KR-ABBVIE-6581325

PATIENT
  Age: 39 Year
  Sex: Male
  Weight: 61 kg

DRUGS (5)
  1. RINVOQ [Suspect]
     Active Substance: UPADACITINIB
     Indication: Crohn^s disease
     Dosage: FILM COATED
     Route: 048
     Dates: start: 20250602
  2. RINVOQ [Suspect]
     Active Substance: UPADACITINIB
     Indication: Crohn^s disease
     Dosage: FILM COATED
     Route: 048
     Dates: start: 20250310, end: 20250601
  3. Fexuclue [Concomitant]
     Indication: Prophylaxis
     Route: 048
     Dates: start: 20250324
  4. Mucosta sr [Concomitant]
     Indication: Prophylaxis
     Route: 048
     Dates: start: 20250324
  5. SHINGRIX [Concomitant]
     Active Substance: RECOMBINANT VARICELLA ZOSTER VIRUS (VZV) GLYCOPROTEIN E
     Indication: Prophylaxis
     Dosage: UNIT DOSE: 1SET
     Route: 030
     Dates: start: 20250310, end: 20250310

REACTIONS (5)
  - Anal fistula [Recovering/Resolving]
  - Abdominal discomfort [Recovering/Resolving]
  - Acne [Not Recovered/Not Resolved]
  - Anal abscess [Recovering/Resolving]
  - Nasopharyngitis [Recovering/Resolving]

NARRATIVE: CASE EVENT DATE: 20250324
